FAERS Safety Report 5048122-9 (Version None)
Quarter: 2006Q3

REPORT INFORMATION
  Report Type: 
  Country: None (occurrence: None)
  Receive Date: 20060705
  Receipt Date: 20060615
  Transmission Date: 20061208
  Serious: No
  Sender: FDA-Public Use
  Company Number: US200606004808

PATIENT
  Age: 67 Year
  Sex: Female

DRUGS (3)
  1. CYMBALTA [Suspect]
     Dosage: SEE IMAGE
     Dates: end: 20060201
  2. CYMBALTA [Suspect]
     Dosage: SEE IMAGE
     Dates: start: 20051001
  3. METHOTREXATE [Concomitant]

REACTIONS (1)
  - HEPATIC ENZYME INCREASED [None]
